FAERS Safety Report 6884182-8 (Version None)
Quarter: 2010Q3

REPORT INFORMATION
  Report Type: 
  Country: None (occurrence: None)
  Receive Date: 20100729
  Receipt Date: 20100722
  Transmission Date: 20110219
  Serious: Yes (Other)
  Sender: FDA-Public Use
  Company Number: US-ALLERGAN-1009553US

PATIENT
  Age: 66 Year
  Sex: Female

DRUGS (2)
  1. BOTOX [Suspect]
     Indication: DYSTONIA
     Dosage: UNK
     Route: 030
  2. AZILECT [Concomitant]
     Indication: DYSTONIA
     Dosage: 1-2 MG DAILY
     Route: 048

REACTIONS (11)
  - DYSPHAGIA [None]
  - FEELING COLD [None]
  - FEELING HOT [None]
  - HEADACHE [None]
  - INJECTION SITE PAIN [None]
  - MUSCLE RIGIDITY [None]
  - MUSCLE SPASTICITY [None]
  - MUSCULOSKELETAL STIFFNESS [None]
  - NAUSEA [None]
  - PAIN [None]
  - URINARY INCONTINENCE [None]
